FAERS Safety Report 6081760-3 (Version None)
Quarter: 2009Q1

REPORT INFORMATION
  Report Type: 
  Country: None (occurrence: None)
  Receive Date: 20090218
  Receipt Date: 20090210
  Transmission Date: 20090719
  Serious: Yes (Death, Hospitalization, Disabling)
  Sender: FDA-Public Use
  Company Number: GB-TEVA-181464ISR

PATIENT
  Age: 35 Year
  Sex: Female
  Weight: 115 kg

DRUGS (4)
  1. CARBOPLATIN [Suspect]
     Indication: ADENOCARCINOMA
  2. GEMCITABINE [Suspect]
     Indication: ADENOCARCINOMA
  3. ERLOTINIB [Suspect]
     Indication: ADENOCARCINOMA
     Route: 048
     Dates: start: 20081015
  4. DOCETAXEL [Suspect]
     Indication: ADENOCARCINOMA

REACTIONS (2)
  - BILE DUCT CANCER [None]
  - CONVULSION [None]
